FAERS Safety Report 4733531-5 (Version None)
Quarter: 2005Q3

REPORT INFORMATION
  Report Type: 
  Country: None (occurrence: None)
  Receive Date: 20050729
  Receipt Date: 20050513
  Transmission Date: 20060218
  Serious: No
  Sender: FDA-Public Use
  Company Number: COT_0067_2005

PATIENT
  Age: 72 Year
  Sex: Female
  Weight: 48.0813 kg

DRUGS (12)
  1. VENTAVIS [Suspect]
     Indication: HYPERTENSION
     Dosage: 45 MCG QDAY IH
     Route: 055
     Dates: start: 20050512, end: 20050523
  2. COUMADIN [Concomitant]
  3. ALLEGRA [Concomitant]
  4. ALDACTONE [Concomitant]
  5. LEVOXYL [Concomitant]
  6. XANAX [Concomitant]
  7. VIAGRA [Concomitant]
  8. LASIX [Concomitant]
  9. PREVACID [Concomitant]
  10. PACERONE [Concomitant]
  11. MULTI-VITAMINS [Concomitant]
  12. IRON SUPPLEMENT [Concomitant]

REACTIONS (3)
  - BLOOD PRESSURE DECREASED [None]
  - DIZZINESS POSTURAL [None]
  - LOSS OF CONSCIOUSNESS [None]
